FAERS Safety Report 15004791 (Version 1)
Quarter: 2018Q2

REPORT INFORMATION
  Report Type: Spontaneous
  Country: US (occurrence: US)
  Receive Date: 20180525
  Receipt Date: 20180525
  Transmission Date: 20180711
  Serious: Yes (Disabling)
  Sender: FDA-Public Use
  Company Number: None

PATIENT
  Age: 60 Year
  Sex: Male
  Weight: 54 kg

DRUGS (16)
  1. ASTAXANTHIN [Concomitant]
  2. VITAMIN E [Concomitant]
     Active Substance: .ALPHA.-TOCOPHEROL
  3. MAX B-ND [Concomitant]
  4. GLUCOSAMINE SULFATE [Concomitant]
     Active Substance: GLUCOSAMINE SULFATE
  5. CIPROFLOXACIN. [Suspect]
     Active Substance: CIPROFLOXACIN
     Indication: INFECTION PROPHYLAXIS
     Dates: start: 20170919, end: 20170929
  6. VITAMIN B12 [Concomitant]
     Active Substance: CYANOCOBALAMIN
  7. PROTEVA PLUS [Concomitant]
  8. MK-7 VITAMIN K-2 [Concomitant]
  9. RHODIOLA ROSEA [Concomitant]
     Active Substance: HERBALS
  10. MAXIMUM FULVIC [Concomitant]
  11. BETA POLLEN PLUS [Concomitant]
  12. LIQUID ZINC [Concomitant]
  13. PRIMAL DEFENSE PROBIOTIC [Concomitant]
  14. RM-10 IMMUNE SYSTEM FOOD [Concomitant]
  15. MEGA -DHA PREMIUM FISH OIL [Concomitant]
  16. PREGNENOLONE [Concomitant]
     Active Substance: PREGNENOLONE

REACTIONS (3)
  - Arthralgia [None]
  - Tendonitis [None]
  - Sciatica [None]

NARRATIVE: CASE EVENT DATE: 20170919
